FAERS Safety Report 19609388 (Version 2)
Quarter: 2021Q3

REPORT INFORMATION
  Report Type: Spontaneous
  Country: JP (occurrence: JP)
  Receive Date: 20210726
  Receipt Date: 20210907
  Transmission Date: 20211014
  Serious: Yes (Other)
  Sender: FDA-Public Use
  Company Number: JP-MYLANLABS-2021M1044871

PATIENT
  Age: 56 Year
  Sex: Male

DRUGS (12)
  1. CARBAMAZEPINE. [Suspect]
     Active Substance: CARBAMAZEPINE
     Dosage: 400 OR 600 MG/DAY
     Route: 065
  2. GABAPENTIN. [Suspect]
     Active Substance: GABAPENTIN
     Indication: SUNCT SYNDROME
     Route: 065
  3. CARBAMAZEPINE. [Suspect]
     Active Substance: CARBAMAZEPINE
     Indication: SUNCT SYNDROME
     Dosage: 300 MILLIGRAM, QD, LATER INCREASED
     Route: 065
  4. SUMATRIPTAN. [Suspect]
     Active Substance: SUMATRIPTAN
     Indication: SUNCT SYNDROME
     Dosage: UNK
     Route: 058
  5. PARACETAMOL [Suspect]
     Active Substance: ACETAMINOPHEN
     Indication: SUNCT SYNDROME
     Route: 065
  6. ELETRIPTAN. [Suspect]
     Active Substance: ELETRIPTAN
     Indication: SUNCT SYNDROME
     Dosage: FOR ONE WEEK
     Route: 065
  7. PREGABALIN. [Suspect]
     Active Substance: PREGABALIN
     Indication: SUNCT SYNDROME
     Route: 065
  8. CARBOCAINE [Suspect]
     Active Substance: MEPIVACAINE HYDROCHLORIDE
     Indication: SUNCT SYNDROME
     Dosage: SUPRAORBITAL AND AURICULOTEMPORAL NERVE BLOCK WITH 1% MEPIVACAINE DURING THE ATTACKS AS A TEST BLOCK
     Route: 065
  9. SUMATRIPTAN. [Suspect]
     Active Substance: SUMATRIPTAN
     Indication: SUNCT SYNDROME
     Dosage: FOR ONE WEEK
     Route: 065
  10. ZOLMITRIPTAN. [Suspect]
     Active Substance: ZOLMITRIPTAN
     Indication: SUNCT SYNDROME
     Dosage: FOR ONE WEEK
     Route: 065
  11. RIZATRIPTAN. [Suspect]
     Active Substance: RIZATRIPTAN
     Indication: SUNCT SYNDROME
     Dosage: FOR ONE WEEK
     Route: 065
  12. CARBOCAINE [Suspect]
     Active Substance: MEPIVACAINE HYDROCHLORIDE
     Dosage: TRIGGER POINT INJECTION AND STELLATE GANGLION BLOCK WITH 1% MEPIVACAINE
     Route: 065

REACTIONS (2)
  - Nausea [Unknown]
  - Drug ineffective [Unknown]
